FAERS Safety Report 4733459-0 (Version None)
Quarter: 2005Q3

REPORT INFORMATION
  Report Type: 
  Country: None (occurrence: None)
  Receive Date: 20050801
  Receipt Date: 20050801
  Transmission Date: 20060218
  Serious: Yes (Hospitalization)
  Sender: FDA-Public Use
  Company Number: None

PATIENT
  Sex: Male
  Weight: 118 kg

DRUGS (1)
  1. ENOXAPARIN SODIUM [Suspect]
     Indication: ATRIAL FIBRILLATION
     Dosage: 100 MG SQ BID
     Route: 058
     Dates: start: 20050419, end: 20050426

REACTIONS (1)
  - RETROPERITONEAL HAEMATOMA [None]
